FAERS Safety Report 15173275 (Version 52)
Quarter: 2025Q3

REPORT INFORMATION
  Report Type: Spontaneous
  Country: CA (occurrence: CA)
  Receive Date: 20180720
  Receipt Date: 20250916
  Transmission Date: 20251021
  Serious: Yes (Other)
  Sender: BAUSCH AND LOMB
  Company Number: CA-FERRINGPH-2018FE03810

PATIENT
  Age: 53 Year
  Sex: Male

DRUGS (470)
  1. METFORMIN [Suspect]
     Active Substance: METFORMIN HYDROCHLORIDE
     Indication: Product used for unknown indication
     Dosage: 2 EVERY 1 DAY
     Route: 065
  2. METFORMIN [Suspect]
     Active Substance: METFORMIN HYDROCHLORIDE
     Route: 065
  3. METFORMIN [Suspect]
     Active Substance: METFORMIN HYDROCHLORIDE
     Route: 065
  4. METFORMIN [Suspect]
     Active Substance: METFORMIN HYDROCHLORIDE
     Route: 065
  5. METFORMIN [Suspect]
     Active Substance: METFORMIN HYDROCHLORIDE
     Route: 065
  6. METFORMIN [Suspect]
     Active Substance: METFORMIN HYDROCHLORIDE
     Route: 065
  7. METFORMIN [Suspect]
     Active Substance: METFORMIN HYDROCHLORIDE
     Route: 065
  8. METFORMIN [Suspect]
     Active Substance: METFORMIN HYDROCHLORIDE
     Route: 065
  9. METFORMIN [Suspect]
     Active Substance: METFORMIN HYDROCHLORIDE
     Route: 065
  10. METFORMIN [Suspect]
     Active Substance: METFORMIN HYDROCHLORIDE
     Route: 065
  11. BUDESONIDE [Suspect]
     Active Substance: BUDESONIDE
     Indication: Colitis ulcerative
     Dosage: 1 DF, 1 TIME DAILY (PROLONGED-RELEASE TABLET)
     Route: 048
     Dates: start: 20170701
  12. BUDESONIDE [Suspect]
     Active Substance: BUDESONIDE
     Dosage: 8 DOSAGE FORM, Q8WEEKS (PROLONGED-RELEASE TABLET)
     Route: 048
     Dates: start: 200707
  13. BUDESONIDE [Suspect]
     Active Substance: BUDESONIDE
     Route: 048
  14. BUDESONIDE [Suspect]
     Active Substance: BUDESONIDE
     Route: 048
  15. BUDESONIDE [Suspect]
     Active Substance: BUDESONIDE
     Route: 048
  16. BUDESONIDE [Suspect]
     Active Substance: BUDESONIDE
     Route: 048
  17. BUDESONIDE [Suspect]
     Active Substance: BUDESONIDE
     Route: 048
  18. BUDESONIDE [Suspect]
     Active Substance: BUDESONIDE
     Route: 048
  19. BUDESONIDE [Suspect]
     Active Substance: BUDESONIDE
     Route: 048
  20. BUDESONIDE [Suspect]
     Active Substance: BUDESONIDE
     Route: 048
  21. BUDESONIDE [Suspect]
     Active Substance: BUDESONIDE
     Route: 048
  22. BUDESONIDE [Suspect]
     Active Substance: BUDESONIDE
     Dosage: 3 ADMINISTRATIONS
     Route: 048
  23. BUDESONIDE [Suspect]
     Active Substance: BUDESONIDE
     Route: 048
  24. BUDESONIDE [Suspect]
     Active Substance: BUDESONIDE
     Route: 048
  25. BUDESONIDE [Suspect]
     Active Substance: BUDESONIDE
     Route: 048
  26. BUDESONIDE [Suspect]
     Active Substance: BUDESONIDE
     Route: 048
  27. BUDESONIDE [Suspect]
     Active Substance: BUDESONIDE
     Route: 065
  28. BUDESONIDE [Suspect]
     Active Substance: BUDESONIDE
     Route: 048
  29. BUDESONIDE [Suspect]
     Active Substance: BUDESONIDE
     Route: 048
  30. BUDESONIDE [Suspect]
     Active Substance: BUDESONIDE
     Route: 065
  31. BUDESONIDE [Suspect]
     Active Substance: BUDESONIDE
     Route: 065
  32. BUDESONIDE [Suspect]
     Active Substance: BUDESONIDE
     Route: 048
  33. BUDESONIDE [Suspect]
     Active Substance: BUDESONIDE
     Dosage: 2 ADMINISTRATIONS
     Route: 048
  34. BUDESONIDE [Suspect]
     Active Substance: BUDESONIDE
     Route: 065
  35. BUDESONIDE [Suspect]
     Active Substance: BUDESONIDE
     Route: 065
  36. BUDESONIDE [Suspect]
     Active Substance: BUDESONIDE
     Dosage: 2 ADMINISTRATIONS
     Route: 048
  37. BUDESONIDE [Suspect]
     Active Substance: BUDESONIDE
     Route: 048
  38. BUDESONIDE [Suspect]
     Active Substance: BUDESONIDE
     Route: 048
  39. BUDESONIDE [Suspect]
     Active Substance: BUDESONIDE
     Route: 065
  40. BUDESONIDE [Suspect]
     Active Substance: BUDESONIDE
     Route: 065
  41. BUDESONIDE [Suspect]
     Active Substance: BUDESONIDE
     Route: 048
  42. BUDESONIDE [Suspect]
     Active Substance: BUDESONIDE
     Dosage: NOT SPECIFIED
     Route: 048
  43. BUDESONIDE [Suspect]
     Active Substance: BUDESONIDE
     Route: 065
  44. BUDESONIDE [Suspect]
     Active Substance: BUDESONIDE
     Route: 048
  45. BUDESONIDE [Suspect]
     Active Substance: BUDESONIDE
     Route: 065
  46. BUDESONIDE [Suspect]
     Active Substance: BUDESONIDE
     Route: 065
  47. BUDESONIDE [Suspect]
     Active Substance: BUDESONIDE
     Route: 065
  48. BUDESONIDE [Suspect]
     Active Substance: BUDESONIDE
     Route: 065
  49. BUDESONIDE [Suspect]
     Active Substance: BUDESONIDE
     Route: 048
  50. BUDESONIDE [Suspect]
     Active Substance: BUDESONIDE
     Dosage: NOT SPECIFIED
     Route: 048
  51. BUDESONIDE [Suspect]
     Active Substance: BUDESONIDE
     Dosage: NOT SPECIFIED
     Route: 048
  52. BUDESONIDE [Suspect]
     Active Substance: BUDESONIDE
     Dosage: NOT SPECIFIED, 3 ADMINISTRATIONS
     Route: 048
  53. BUDESONIDE [Suspect]
     Active Substance: BUDESONIDE
     Route: 065
  54. BUDESONIDE [Suspect]
     Active Substance: BUDESONIDE
     Dosage: NOT SPECIFIED
     Route: 048
  55. BUDESONIDE [Suspect]
     Active Substance: BUDESONIDE
     Dosage: NOT SPECIFIED
     Route: 065
  56. BUDESONIDE [Suspect]
     Active Substance: BUDESONIDE
     Route: 048
  57. BUDESONIDE [Suspect]
     Active Substance: BUDESONIDE
     Route: 065
  58. BUDESONIDE [Suspect]
     Active Substance: BUDESONIDE
     Dosage: NOT SPECIFIED
     Route: 065
  59. BUDESONIDE [Suspect]
     Active Substance: BUDESONIDE
     Route: 065
  60. BUDESONIDE [Suspect]
     Active Substance: BUDESONIDE
     Route: 065
  61. BUDESONIDE [Suspect]
     Active Substance: BUDESONIDE
     Dosage: 4 DOSAGE GIVEN
     Route: 048
  62. BUDESONIDE [Suspect]
     Active Substance: BUDESONIDE
     Route: 048
  63. BUDESONIDE [Suspect]
     Active Substance: BUDESONIDE
     Route: 065
  64. BUDESONIDE [Suspect]
     Active Substance: BUDESONIDE
     Dosage: NOT SPECIFIED
     Route: 065
  65. BUDESONIDE [Suspect]
     Active Substance: BUDESONIDE
     Dosage: 3 ADMINISTRATIONS
     Route: 048
  66. BUDESONIDE [Suspect]
     Active Substance: BUDESONIDE
     Dosage: 2 ADMINISTRATIONS
     Route: 048
  67. BUDESONIDE [Suspect]
     Active Substance: BUDESONIDE
     Route: 048
  68. BUDESONIDE [Suspect]
     Active Substance: BUDESONIDE
     Route: 065
  69. BUDESONIDE [Suspect]
     Active Substance: BUDESONIDE
     Route: 065
  70. BUDESONIDE [Suspect]
     Active Substance: BUDESONIDE
     Route: 048
  71. BUDESONIDE [Suspect]
     Active Substance: BUDESONIDE
     Route: 048
  72. BUDESONIDE [Suspect]
     Active Substance: BUDESONIDE
     Route: 048
  73. BUDESONIDE [Suspect]
     Active Substance: BUDESONIDE
     Route: 048
  74. BUDESONIDE [Suspect]
     Active Substance: BUDESONIDE
     Route: 048
  75. BUDESONIDE [Suspect]
     Active Substance: BUDESONIDE
     Route: 065
  76. BUDESONIDE [Suspect]
     Active Substance: BUDESONIDE
     Route: 048
  77. BUDESONIDE [Suspect]
     Active Substance: BUDESONIDE
     Route: 048
  78. BUDESONIDE [Suspect]
     Active Substance: BUDESONIDE
     Route: 048
  79. BUDESONIDE [Suspect]
     Active Substance: BUDESONIDE
     Route: 048
  80. BUDESONIDE [Suspect]
     Active Substance: BUDESONIDE
     Route: 048
  81. BUDESONIDE [Suspect]
     Active Substance: BUDESONIDE
     Route: 048
  82. MESALAMINE [Suspect]
     Active Substance: MESALAMINE
     Indication: Colitis ulcerative
     Route: 065
  83. MESALAMINE [Suspect]
     Active Substance: MESALAMINE
     Route: 048
  84. MESALAMINE [Suspect]
     Active Substance: MESALAMINE
     Route: 065
  85. MESALAMINE [Suspect]
     Active Substance: MESALAMINE
     Route: 065
  86. MESALAMINE [Suspect]
     Active Substance: MESALAMINE
     Route: 065
  87. MESALAMINE [Suspect]
     Active Substance: MESALAMINE
     Route: 065
  88. MESALAMINE [Suspect]
     Active Substance: MESALAMINE
     Route: 048
  89. MESALAMINE [Suspect]
     Active Substance: MESALAMINE
     Dosage: 3 ADMINISTRATIONS
     Route: 065
  90. MESALAMINE [Suspect]
     Active Substance: MESALAMINE
     Route: 065
  91. MESALAMINE [Suspect]
     Active Substance: MESALAMINE
     Route: 048
  92. MESALAMINE [Suspect]
     Active Substance: MESALAMINE
     Route: 065
  93. MESALAMINE [Suspect]
     Active Substance: MESALAMINE
     Route: 065
  94. MESALAMINE [Suspect]
     Active Substance: MESALAMINE
     Route: 065
  95. MESALAMINE [Suspect]
     Active Substance: MESALAMINE
     Route: 065
  96. MESALAMINE [Suspect]
     Active Substance: MESALAMINE
     Route: 065
  97. MESALAMINE [Suspect]
     Active Substance: MESALAMINE
     Route: 065
  98. MESALAMINE [Suspect]
     Active Substance: MESALAMINE
     Route: 048
  99. MESALAMINE [Suspect]
     Active Substance: MESALAMINE
     Route: 065
  100. MESALAMINE [Suspect]
     Active Substance: MESALAMINE
     Dosage: NOT SPECIFIED
     Route: 065
  101. MESALAMINE [Suspect]
     Active Substance: MESALAMINE
     Route: 065
  102. MESALAMINE [Suspect]
     Active Substance: MESALAMINE
     Dosage: DOSAGE FORM: NOT SPECIFIED, 2 ADMINISTRATIONS
     Route: 065
  103. MESALAMINE [Suspect]
     Active Substance: MESALAMINE
     Route: 065
  104. MESALAMINE [Suspect]
     Active Substance: MESALAMINE
     Route: 065
  105. MESALAMINE [Suspect]
     Active Substance: MESALAMINE
     Route: 065
  106. MESALAMINE [Suspect]
     Active Substance: MESALAMINE
     Route: 065
  107. MESALAMINE [Suspect]
     Active Substance: MESALAMINE
     Route: 065
  108. MESALAMINE [Suspect]
     Active Substance: MESALAMINE
     Dosage: DOSAGE FORM: NOT SPECIFIED
     Route: 065
  109. MESALAMINE [Suspect]
     Active Substance: MESALAMINE
     Dosage: DOSAGE FORM: NOT SPECIFIED
     Route: 048
  110. MESALAMINE [Suspect]
     Active Substance: MESALAMINE
     Route: 065
  111. MESALAMINE [Suspect]
     Active Substance: MESALAMINE
     Route: 048
  112. MESALAMINE [Suspect]
     Active Substance: MESALAMINE
     Route: 048
  113. MESALAMINE [Suspect]
     Active Substance: MESALAMINE
     Route: 048
  114. MESALAMINE [Suspect]
     Active Substance: MESALAMINE
     Route: 048
  115. MESALAMINE [Suspect]
     Active Substance: MESALAMINE
     Route: 065
  116. MESALAMINE [Suspect]
     Active Substance: MESALAMINE
     Route: 065
  117. MESALAMINE [Suspect]
     Active Substance: MESALAMINE
     Route: 065
  118. MESALAMINE [Suspect]
     Active Substance: MESALAMINE
     Route: 065
  119. MESALAMINE [Suspect]
     Active Substance: MESALAMINE
     Route: 065
  120. MESALAMINE [Suspect]
     Active Substance: MESALAMINE
     Route: 065
  121. MESALAMINE [Suspect]
     Active Substance: MESALAMINE
     Route: 065
  122. MESALAMINE [Suspect]
     Active Substance: MESALAMINE
     Route: 065
  123. MESALAMINE [Suspect]
     Active Substance: MESALAMINE
     Route: 065
  124. MESALAMINE [Suspect]
     Active Substance: MESALAMINE
     Route: 065
  125. MESALAMINE [Suspect]
     Active Substance: MESALAMINE
     Dosage: DOSAGE FORM: NOT SPECIFIED
     Route: 065
  126. MESALAMINE [Suspect]
     Active Substance: MESALAMINE
     Route: 065
  127. MESALAMINE [Suspect]
     Active Substance: MESALAMINE
     Route: 065
  128. MESALAMINE [Suspect]
     Active Substance: MESALAMINE
     Dosage: DOSAGE FORM: NOT SPECIFIED
     Route: 065
  129. MESALAMINE [Suspect]
     Active Substance: MESALAMINE
     Dosage: DOSAGE FORM: NOT SPECIFIED
     Route: 048
  130. MESALAMINE [Suspect]
     Active Substance: MESALAMINE
     Dosage: DOSAGE FORM: NOT SPECIFIED
     Route: 065
  131. MESALAMINE [Suspect]
     Active Substance: MESALAMINE
     Dosage: DOSAGE FORM: NOT SPECIFIED
     Route: 065
  132. MESALAMINE [Suspect]
     Active Substance: MESALAMINE
     Dosage: DOSAGE FORM: NOT SPECIFIED
     Route: 065
  133. MESALAMINE [Suspect]
     Active Substance: MESALAMINE
     Dosage: DOSAGE FORM: NOT SPECIFIED
     Route: 065
  134. MESALAMINE [Suspect]
     Active Substance: MESALAMINE
     Route: 048
  135. MESALAMINE [Suspect]
     Active Substance: MESALAMINE
     Dosage: DOSAGE FORM: NOT SPECIFIED
     Route: 065
  136. MESALAMINE [Suspect]
     Active Substance: MESALAMINE
     Route: 048
  137. MESALAMINE [Suspect]
     Active Substance: MESALAMINE
     Route: 065
  138. MESALAMINE [Suspect]
     Active Substance: MESALAMINE
     Route: 048
  139. MESALAMINE [Suspect]
     Active Substance: MESALAMINE
     Route: 065
  140. MESALAMINE [Suspect]
     Active Substance: MESALAMINE
     Route: 048
  141. MESALAMINE [Suspect]
     Active Substance: MESALAMINE
     Route: 065
  142. MESALAMINE [Suspect]
     Active Substance: MESALAMINE
     Route: 065
  143. MESALAMINE [Suspect]
     Active Substance: MESALAMINE
     Route: 048
  144. MESALAMINE [Suspect]
     Active Substance: MESALAMINE
     Route: 065
  145. MESALAMINE [Suspect]
     Active Substance: MESALAMINE
     Route: 065
  146. MESALAMINE [Suspect]
     Active Substance: MESALAMINE
     Route: 048
  147. MESALAMINE [Suspect]
     Active Substance: MESALAMINE
     Route: 048
  148. MESALAMINE [Suspect]
     Active Substance: MESALAMINE
     Route: 048
  149. MESALAMINE [Suspect]
     Active Substance: MESALAMINE
     Route: 065
  150. MESALAMINE [Suspect]
     Active Substance: MESALAMINE
     Route: 065
  151. MESALAMINE [Suspect]
     Active Substance: MESALAMINE
     Route: 065
  152. MESALAMINE [Suspect]
     Active Substance: MESALAMINE
     Route: 048
  153. MESALAMINE [Suspect]
     Active Substance: MESALAMINE
     Route: 048
  154. MESALAMINE [Suspect]
     Active Substance: MESALAMINE
     Route: 065
  155. MESALAMINE [Suspect]
     Active Substance: MESALAMINE
     Route: 065
  156. MESALAMINE [Suspect]
     Active Substance: MESALAMINE
     Route: 065
  157. MESALAMINE [Suspect]
     Active Substance: MESALAMINE
     Route: 065
  158. HYDROCORTISONE [Suspect]
     Active Substance: HYDROCORTISONE
     Indication: Colitis ulcerative
     Route: 042
  159. HYDROCORTISONE [Suspect]
     Active Substance: HYDROCORTISONE
     Indication: Crohn^s disease
     Route: 048
  160. HYDROCORTISONE [Suspect]
     Active Substance: HYDROCORTISONE
     Route: 048
  161. HYDROCORTISONE [Suspect]
     Active Substance: HYDROCORTISONE
     Route: 048
  162. HYDROCORTISONE [Suspect]
     Active Substance: HYDROCORTISONE
     Route: 048
  163. HYDROCORTISONE [Suspect]
     Active Substance: HYDROCORTISONE
     Route: 048
  164. HYDROCORTISONE [Suspect]
     Active Substance: HYDROCORTISONE
     Route: 048
  165. HYDROCORTISONE [Suspect]
     Active Substance: HYDROCORTISONE
     Route: 065
  166. HYDROCORTISONE [Suspect]
     Active Substance: HYDROCORTISONE
     Route: 065
  167. HYDROCORTISONE [Suspect]
     Active Substance: HYDROCORTISONE
     Route: 048
  168. HYDROCORTISONE [Suspect]
     Active Substance: HYDROCORTISONE
     Route: 065
  169. HYDROCORTISONE [Suspect]
     Active Substance: HYDROCORTISONE
     Route: 065
  170. HYDROCORTISONE [Suspect]
     Active Substance: HYDROCORTISONE
     Route: 065
  171. HYDROCORTISONE [Suspect]
     Active Substance: HYDROCORTISONE
     Route: 048
  172. HYDROCORTISONE [Suspect]
     Active Substance: HYDROCORTISONE
     Route: 065
  173. HYDROCORTISONE [Suspect]
     Active Substance: HYDROCORTISONE
     Dosage: DOSAGE FORM: NOT SPECIFIED
     Route: 065
  174. HYDROCORTISONE [Suspect]
     Active Substance: HYDROCORTISONE
     Dosage: DOSAGE FORM: NOT SPECIFIED
     Route: 048
  175. HYDROCORTISONE [Suspect]
     Active Substance: HYDROCORTISONE
     Dosage: DOSAGE FORM: NOT SPECIFIED
     Route: 048
  176. HYDROCORTISONE [Suspect]
     Active Substance: HYDROCORTISONE
     Dosage: DOSAGE FORM: NOT SPECIFIED
     Route: 048
  177. HYDROCORTISONE [Suspect]
     Active Substance: HYDROCORTISONE
     Route: 065
  178. HYDROCORTISONE [Suspect]
     Active Substance: HYDROCORTISONE
     Dosage: DOSAGE FORM: NOT SPECIFIED
     Route: 065
  179. HYDROCORTISONE [Suspect]
     Active Substance: HYDROCORTISONE
     Dosage: DOSAGE FORM: NOT SPECIFIED
     Route: 048
  180. HYDROCORTISONE [Suspect]
     Active Substance: HYDROCORTISONE
     Dosage: DOSAGE FORM: NOT SPECIFIED
     Route: 048
  181. HYDROCORTISONE [Suspect]
     Active Substance: HYDROCORTISONE
     Route: 065
  182. HYDROCORTISONE [Suspect]
     Active Substance: HYDROCORTISONE
     Route: 048
  183. HYDROCORTISONE [Suspect]
     Active Substance: HYDROCORTISONE
     Route: 048
  184. HYDROCORTISONE [Suspect]
     Active Substance: HYDROCORTISONE
     Route: 065
  185. HYDROCORTISONE [Suspect]
     Active Substance: HYDROCORTISONE
     Route: 065
  186. HYDROCORTISONE [Suspect]
     Active Substance: HYDROCORTISONE
     Dosage: THERAPY DURATION: 1 DAY
     Route: 048
  187. HYDROCORTISONE [Suspect]
     Active Substance: HYDROCORTISONE
     Dosage: THERAPY DURATION: 1 DAY
     Route: 048
  188. HYDROCORTISONE [Suspect]
     Active Substance: HYDROCORTISONE
     Dosage: THERAPY DURATION: 1 DAY
     Route: 048
  189. HYDROCORTISONE [Suspect]
     Active Substance: HYDROCORTISONE
     Dosage: THERAPY DURATION: 1 DAY
     Route: 065
  190. HYDROCORTISONE [Suspect]
     Active Substance: HYDROCORTISONE
     Route: 065
  191. HYDROCORTISONE [Suspect]
     Active Substance: HYDROCORTISONE
     Dosage: THERAPY DURATION: 1 DAY
     Route: 065
  192. HYDROCORTISONE [Suspect]
     Active Substance: HYDROCORTISONE
     Route: 065
  193. HYDROCORTISONE [Suspect]
     Active Substance: HYDROCORTISONE
     Dosage: THERAPY DURATION: 1 DAY
     Route: 048
  194. HYDROCORTISONE [Suspect]
     Active Substance: HYDROCORTISONE
     Dosage: THERAPY DURATION: 1 DAY
     Route: 048
  195. HYDROCORTISONE [Suspect]
     Active Substance: HYDROCORTISONE
     Dosage: THERAPY DURATION: 1 DAY
     Route: 048
  196. HYDROCORTISONE [Suspect]
     Active Substance: HYDROCORTISONE
     Dosage: THERAPY DURATION: 1 DAY, DOSAGE FORM: NOT SPECIFIED
     Route: 048
  197. HYDROCORTISONE [Suspect]
     Active Substance: HYDROCORTISONE
     Dosage: THERAPY DURATION: 1 DAY
     Route: 065
  198. HYDROCORTISONE [Suspect]
     Active Substance: HYDROCORTISONE
     Route: 048
  199. HYDROCORTISONE [Suspect]
     Active Substance: HYDROCORTISONE
     Route: 065
  200. HYDROCORTISONE [Suspect]
     Active Substance: HYDROCORTISONE
     Route: 065
  201. HYDROCORTISONE [Suspect]
     Active Substance: HYDROCORTISONE
     Route: 048
  202. HYDROCORTISONE [Suspect]
     Active Substance: HYDROCORTISONE
     Route: 048
  203. HYDROCORTISONE [Suspect]
     Active Substance: HYDROCORTISONE
     Route: 048
  204. HYDROCORTISONE [Suspect]
     Active Substance: HYDROCORTISONE
     Route: 065
  205. HYDROCORTISONE [Suspect]
     Active Substance: HYDROCORTISONE
     Indication: Colitis ulcerative
     Route: 065
     Dates: start: 201807
  206. HYDROCORTISONE [Suspect]
     Active Substance: HYDROCORTISONE
     Indication: Crohn^s disease
     Dosage: 1 DOSAGE FORM, 1X/DAY QD
     Route: 048
  207. HYDROCORTISONE [Suspect]
     Active Substance: HYDROCORTISONE
     Dosage: 8 DOSAGE FORM, Q8 WEEK
     Route: 065
     Dates: start: 201707
  208. HYDROCORTISONE [Suspect]
     Active Substance: HYDROCORTISONE
     Route: 065
  209. HYDROCORTISONE [Suspect]
     Active Substance: HYDROCORTISONE
     Route: 048
  210. HYDROCORTISONE [Suspect]
     Active Substance: HYDROCORTISONE
     Route: 048
  211. HYDROCORTISONE [Suspect]
     Active Substance: HYDROCORTISONE
     Route: 048
  212. HYDROCORTISONE [Suspect]
     Active Substance: HYDROCORTISONE
     Route: 048
  213. HYDROCORTISONE [Suspect]
     Active Substance: HYDROCORTISONE
     Route: 048
  214. HYDROCORTISONE [Suspect]
     Active Substance: HYDROCORTISONE
     Route: 065
  215. HYDROCORTISONE [Suspect]
     Active Substance: HYDROCORTISONE
     Route: 065
  216. HYDROCORTISONE [Suspect]
     Active Substance: HYDROCORTISONE
     Route: 065
  217. BUDESONIDE [Suspect]
     Active Substance: BUDESONIDE
     Indication: Colitis ulcerative
     Route: 048
  218. BUDESONIDE [Suspect]
     Active Substance: BUDESONIDE
     Route: 048
  219. BUDESONIDE [Suspect]
     Active Substance: BUDESONIDE
     Route: 048
  220. BUDESONIDE [Suspect]
     Active Substance: BUDESONIDE
     Route: 048
  221. BUDESONIDE [Suspect]
     Active Substance: BUDESONIDE
     Route: 048
  222. BUDESONIDE [Suspect]
     Active Substance: BUDESONIDE
     Dosage: 5 DOSAGE TAKEN
     Route: 048
  223. BUDESONIDE [Suspect]
     Active Substance: BUDESONIDE
     Dosage: 3 DOSAGE TAKEN
     Route: 048
  224. BUDESONIDE [Suspect]
     Active Substance: BUDESONIDE
     Route: 048
  225. BUDESONIDE [Suspect]
     Active Substance: BUDESONIDE
     Route: 065
  226. BUDESONIDE [Suspect]
     Active Substance: BUDESONIDE
     Route: 065
  227. BUDESONIDE [Suspect]
     Active Substance: BUDESONIDE
     Dosage: 2 DOSAGE TAKEN
     Route: 048
  228. BUDESONIDE [Suspect]
     Active Substance: BUDESONIDE
     Route: 048
  229. BUDESONIDE [Suspect]
     Active Substance: BUDESONIDE
     Route: 065
  230. BUDESONIDE [Suspect]
     Active Substance: BUDESONIDE
     Dosage: 2 DOSAGE TAKEN
     Route: 065
  231. BUDESONIDE [Suspect]
     Active Substance: BUDESONIDE
     Route: 048
  232. BUDESONIDE [Suspect]
     Active Substance: BUDESONIDE
     Route: 048
  233. BUDESONIDE [Suspect]
     Active Substance: BUDESONIDE
     Route: 065
  234. BUDESONIDE [Suspect]
     Active Substance: BUDESONIDE
     Route: 048
  235. BUDESONIDE [Suspect]
     Active Substance: BUDESONIDE
     Route: 065
  236. BUDESONIDE [Suspect]
     Active Substance: BUDESONIDE
     Route: 065
  237. BUDESONIDE [Suspect]
     Active Substance: BUDESONIDE
     Route: 048
  238. BUDESONIDE [Suspect]
     Active Substance: BUDESONIDE
     Route: 065
  239. BUDESONIDE [Suspect]
     Active Substance: BUDESONIDE
     Route: 065
  240. BUDESONIDE [Suspect]
     Active Substance: BUDESONIDE
     Route: 048
  241. BUDESONIDE [Suspect]
     Active Substance: BUDESONIDE
     Route: 048
  242. HYDROCORTISONE ACETATE [Suspect]
     Active Substance: HYDROCORTISONE ACETATE
     Indication: Crohn^s disease
     Route: 065
  243. HYDROCORTISONE ACETATE [Suspect]
     Active Substance: HYDROCORTISONE ACETATE
     Indication: Colitis ulcerative
     Route: 048
  244. HYDROCORTISONE ACETATE [Suspect]
     Active Substance: HYDROCORTISONE ACETATE
     Indication: Deep vein thrombosis
     Route: 048
  245. HYDROCORTISONE ACETATE [Suspect]
     Active Substance: HYDROCORTISONE ACETATE
     Route: 048
  246. HYDROCORTISONE ACETATE [Suspect]
     Active Substance: HYDROCORTISONE ACETATE
     Route: 065
  247. HYDROCORTISONE ACETATE [Suspect]
     Active Substance: HYDROCORTISONE ACETATE
     Route: 048
  248. HYDROCORTISONE ACETATE [Suspect]
     Active Substance: HYDROCORTISONE ACETATE
     Route: 065
  249. HYDROCORTISONE ACETATE [Suspect]
     Active Substance: HYDROCORTISONE ACETATE
     Route: 065
  250. HYDROCORTISONE ACETATE [Suspect]
     Active Substance: HYDROCORTISONE ACETATE
     Route: 048
  251. HYDROCORTISONE ACETATE [Suspect]
     Active Substance: HYDROCORTISONE ACETATE
     Route: 065
  252. HYDROCORTISONE ACETATE [Suspect]
     Active Substance: HYDROCORTISONE ACETATE
     Route: 048
  253. HYDROCORTISONE ACETATE [Suspect]
     Active Substance: HYDROCORTISONE ACETATE
     Route: 048
  254. HYDROCORTISONE ACETATE [Suspect]
     Active Substance: HYDROCORTISONE ACETATE
     Dosage: THERAPY DURATION: 11 YEARS
     Route: 065
  255. HYDROCORTISONE ACETATE [Suspect]
     Active Substance: HYDROCORTISONE ACETATE
     Route: 065
  256. HYDROCORTISONE ACETATE [Suspect]
     Active Substance: HYDROCORTISONE ACETATE
     Route: 048
  257. HYDROCORTISONE ACETATE [Suspect]
     Active Substance: HYDROCORTISONE ACETATE
     Indication: Crohn^s disease
     Route: 065
  258. HYDROCORTISONE ACETATE [Suspect]
     Active Substance: HYDROCORTISONE ACETATE
     Indication: Colitis ulcerative
     Route: 065
  259. HYDROCORTISONE ACETATE [Suspect]
     Active Substance: HYDROCORTISONE ACETATE
     Indication: Deep vein thrombosis
     Route: 065
  260. EPINEPHRINE [Suspect]
     Active Substance: EPINEPHRINE
     Indication: Product used for unknown indication
     Route: 065
  261. EPINEPHRINE [Suspect]
     Active Substance: EPINEPHRINE
     Route: 065
  262. EPINEPHRINE [Suspect]
     Active Substance: EPINEPHRINE
     Route: 065
  263. DESOXIMETASONE [Suspect]
     Active Substance: DESOXIMETASONE
     Indication: Crohn^s disease
     Route: 048
  264. DESOXIMETASONE [Suspect]
     Active Substance: DESOXIMETASONE
     Indication: Colitis ulcerative
     Route: 048
  265. DESOXIMETASONE [Suspect]
     Active Substance: DESOXIMETASONE
     Route: 048
  266. DESOXIMETASONE [Suspect]
     Active Substance: DESOXIMETASONE
     Route: 048
  267. DESOXIMETASONE [Suspect]
     Active Substance: DESOXIMETASONE
     Dosage: NOT SPECIFIED
     Route: 065
  268. DESOXIMETASONE [Suspect]
     Active Substance: DESOXIMETASONE
     Dosage: NOT SPECIFIED
     Route: 065
  269. DESOXIMETASONE [Suspect]
     Active Substance: DESOXIMETASONE
     Dosage: NOT SPECIFIED
     Route: 065
  270. DESOXIMETASONE [Suspect]
     Active Substance: DESOXIMETASONE
     Route: 065
  271. DESOXIMETASONE [Suspect]
     Active Substance: DESOXIMETASONE
     Dosage: NOT SPECIFIED
     Route: 065
  272. DESOXIMETASONE [Suspect]
     Active Substance: DESOXIMETASONE
     Dosage: NOT SPECIFIED
     Route: 048
  273. DESOXIMETASONE [Suspect]
     Active Substance: DESOXIMETASONE
     Route: 065
  274. DESOXIMETASONE [Suspect]
     Active Substance: DESOXIMETASONE
     Route: 048
  275. DESOXIMETASONE [Suspect]
     Active Substance: DESOXIMETASONE
     Route: 048
  276. DESOXIMETASONE [Suspect]
     Active Substance: DESOXIMETASONE
     Route: 065
  277. DESOXIMETASONE [Suspect]
     Active Substance: DESOXIMETASONE
     Route: 065
  278. DESOXIMETASONE [Suspect]
     Active Substance: DESOXIMETASONE
     Route: 065
  279. DESOXIMETASONE [Suspect]
     Active Substance: DESOXIMETASONE
     Route: 048
  280. DESOXIMETASONE [Suspect]
     Active Substance: DESOXIMETASONE
     Route: 048
  281. DESOXIMETASONE [Suspect]
     Active Substance: DESOXIMETASONE
     Route: 048
  282. DESOXIMETASONE [Suspect]
     Active Substance: DESOXIMETASONE
     Route: 065
  283. DESOXIMETASONE [Suspect]
     Active Substance: DESOXIMETASONE
     Route: 065
  284. DESOXIMETASONE [Suspect]
     Active Substance: DESOXIMETASONE
     Route: 048
  285. DESOXIMETASONE [Suspect]
     Active Substance: DESOXIMETASONE
     Route: 048
  286. DESOXIMETASONE [Suspect]
     Active Substance: DESOXIMETASONE
     Route: 048
  287. WARFARIN [Suspect]
     Active Substance: WARFARIN
     Indication: Deep vein thrombosis
     Dosage: 2 DOSAGE TAKEN
     Route: 065
  288. WARFARIN [Suspect]
     Active Substance: WARFARIN
     Indication: Colitis ulcerative
     Route: 065
  289. WARFARIN [Suspect]
     Active Substance: WARFARIN
     Route: 065
  290. WARFARIN [Suspect]
     Active Substance: WARFARIN
     Route: 048
  291. WARFARIN [Suspect]
     Active Substance: WARFARIN
     Route: 065
  292. WARFARIN [Suspect]
     Active Substance: WARFARIN
     Route: 048
  293. WARFARIN [Suspect]
     Active Substance: WARFARIN
     Dosage: WARFARIN SODIUM,
     Route: 048
  294. WARFARIN [Suspect]
     Active Substance: WARFARIN
     Dosage: WARFARIN SODIUM, 2 DOSAGE TAKEN
     Route: 048
  295. WARFARIN [Suspect]
     Active Substance: WARFARIN
     Route: 065
  296. WARFARIN [Suspect]
     Active Substance: WARFARIN
     Dosage: WARFARIN SODIUM
     Route: 048
  297. WARFARIN [Suspect]
     Active Substance: WARFARIN
     Route: 048
  298. ROSUVASTATIN [Suspect]
     Active Substance: ROSUVASTATIN
     Indication: Blood cholesterol increased
     Route: 065
  299. ROSUVASTATIN [Suspect]
     Active Substance: ROSUVASTATIN
     Indication: Ill-defined disorder
     Route: 065
  300. ROSUVASTATIN [Suspect]
     Active Substance: ROSUVASTATIN
     Route: 065
  301. ROSUVASTATIN [Suspect]
     Active Substance: ROSUVASTATIN
     Route: 065
  302. ROSUVASTATIN [Suspect]
     Active Substance: ROSUVASTATIN
     Route: 065
  303. CORTISONE [Suspect]
     Active Substance: CORTISONE
     Indication: Crohn^s disease
     Route: 065
  304. CORTISONE [Suspect]
     Active Substance: CORTISONE
     Indication: Colitis ulcerative
     Route: 048
  305. CORTISONE [Suspect]
     Active Substance: CORTISONE
     Route: 048
  306. CORTISONE [Suspect]
     Active Substance: CORTISONE
     Route: 048
  307. CORTISONE [Suspect]
     Active Substance: CORTISONE
     Route: 048
  308. CORTISONE [Suspect]
     Active Substance: CORTISONE
     Dosage: DOSAGE FORM: NOT SPECIFIED
     Route: 048
  309. CORTISONE [Suspect]
     Active Substance: CORTISONE
     Route: 048
  310. CORTISONE [Suspect]
     Active Substance: CORTISONE
     Route: 065
  311. CORTISONE [Suspect]
     Active Substance: CORTISONE
     Dosage: DOSAGE FORM: NOT SPECIFIED
     Route: 048
  312. CORTISONE [Suspect]
     Active Substance: CORTISONE
     Dosage: DOSAGE FORM: NOT SPECIFIED
     Route: 048
  313. CORTISONE [Suspect]
     Active Substance: CORTISONE
     Dosage: DOSAGE FORM: NOT SPECIFIED
     Route: 065
  314. CORTISONE [Suspect]
     Active Substance: CORTISONE
     Dosage: DOSAGE FORM: NOT SPECIFIED
     Route: 048
  315. CORTISONE [Suspect]
     Active Substance: CORTISONE
     Dosage: DOSAGE FORM: NOT SPECIFIED
     Route: 048
  316. CORTISONE [Suspect]
     Active Substance: CORTISONE
     Dosage: DOSAGE FORM: NOT SPECIFIED
     Route: 065
  317. CORTISONE [Suspect]
     Active Substance: CORTISONE
     Dosage: DOSAGE FORM: NOT SPECIFIED
     Route: 065
  318. CORTISONE [Suspect]
     Active Substance: CORTISONE
     Dosage: DOSAGE FORM: NOT SPECIFIED
     Route: 065
  319. CORTISONE [Suspect]
     Active Substance: CORTISONE
     Dosage: DOSAGE FORM: NOT SPECIFIED
     Route: 048
  320. CORTISONE [Suspect]
     Active Substance: CORTISONE
     Route: 065
  321. CORTISONE [Suspect]
     Active Substance: CORTISONE
     Dosage: DOSAGE FORM: NOT SPECIFIED
     Route: 048
  322. CORTISONE [Suspect]
     Active Substance: CORTISONE
     Route: 048
  323. CORTISONE [Suspect]
     Active Substance: CORTISONE
     Route: 048
  324. CORTISONE [Suspect]
     Active Substance: CORTISONE
     Route: 048
  325. CORTISONE [Suspect]
     Active Substance: CORTISONE
     Route: 042
  326. CORTISONE [Suspect]
     Active Substance: CORTISONE
     Route: 065
  327. ACETAMINOPHEN [Suspect]
     Active Substance: ACETAMINOPHEN
     Indication: Ill-defined disorder
     Dosage: NOT SPECIFIED, 1 EVERY .25 DAYS
     Route: 065
  328. ACETAMINOPHEN [Suspect]
     Active Substance: ACETAMINOPHEN
     Route: 065
  329. ACETAMINOPHEN [Suspect]
     Active Substance: ACETAMINOPHEN
     Route: 065
  330. ACETAMINOPHEN [Suspect]
     Active Substance: ACETAMINOPHEN
     Route: 065
  331. ADALIMUMAB [Suspect]
     Active Substance: ADALIMUMAB
     Indication: Deep vein thrombosis
     Route: 065
  332. ADALIMUMAB [Suspect]
     Active Substance: ADALIMUMAB
     Indication: Crohn^s disease
     Route: 065
  333. ADALIMUMAB [Suspect]
     Active Substance: ADALIMUMAB
     Route: 065
  334. ADALIMUMAB [Suspect]
     Active Substance: ADALIMUMAB
     Route: 065
  335. ADALIMUMAB [Suspect]
     Active Substance: ADALIMUMAB
     Route: 065
  336. ADALIMUMAB [Suspect]
     Active Substance: ADALIMUMAB
     Route: 048
  337. ADALIMUMAB [Suspect]
     Active Substance: ADALIMUMAB
     Route: 048
  338. ADALIMUMAB [Suspect]
     Active Substance: ADALIMUMAB
     Route: 058
  339. ADALIMUMAB [Suspect]
     Active Substance: ADALIMUMAB
     Route: 065
  340. ADALIMUMAB [Suspect]
     Active Substance: ADALIMUMAB
     Route: 058
  341. ADALIMUMAB [Suspect]
     Active Substance: ADALIMUMAB
     Route: 065
  342. ADALIMUMAB [Suspect]
     Active Substance: ADALIMUMAB
     Route: 065
  343. ADALIMUMAB [Suspect]
     Active Substance: ADALIMUMAB
     Route: 058
  344. ADALIMUMAB [Suspect]
     Active Substance: ADALIMUMAB
     Route: 048
  345. ADALIMUMAB [Suspect]
     Active Substance: ADALIMUMAB
     Route: 058
  346. ALBENDAZOLE [Suspect]
     Active Substance: ALBENDAZOLE
     Indication: Deep vein thrombosis
     Route: 042
  347. ALBENDAZOLE [Suspect]
     Active Substance: ALBENDAZOLE
     Indication: Colitis ulcerative
     Route: 048
  348. ALBENDAZOLE [Suspect]
     Active Substance: ALBENDAZOLE
     Route: 048
  349. ALBENDAZOLE [Suspect]
     Active Substance: ALBENDAZOLE
     Route: 065
  350. ASACOL [Suspect]
     Active Substance: MESALAMINE
     Indication: Colitis ulcerative
     Route: 065
  351. ASACOL [Suspect]
     Active Substance: MESALAMINE
     Route: 065
  352. ASACOL [Suspect]
     Active Substance: MESALAMINE
     Route: 065
  353. ASACOL [Suspect]
     Active Substance: MESALAMINE
     Dosage: 2 DOSAGE TAKEN
     Route: 065
  354. ASACOL [Suspect]
     Active Substance: MESALAMINE
     Route: 065
  355. ASACOL [Suspect]
     Active Substance: MESALAMINE
     Route: 065
  356. ASACOL [Suspect]
     Active Substance: MESALAMINE
     Route: 065
  357. ASACOL [Suspect]
     Active Substance: MESALAMINE
     Route: 065
  358. ASACOL [Suspect]
     Active Substance: MESALAMINE
     Route: 048
  359. ASACOL [Suspect]
     Active Substance: MESALAMINE
     Route: 065
  360. ASACOL [Suspect]
     Active Substance: MESALAMINE
     Route: 065
  361. ASACOL [Suspect]
     Active Substance: MESALAMINE
     Route: 065
  362. ASPIRIN [Suspect]
     Active Substance: ASPIRIN
     Indication: Ill-defined disorder
     Route: 065
  363. CANDESARTAN [Suspect]
     Active Substance: CANDESARTAN
     Indication: Colitis ulcerative
     Route: 048
  364. CANDESARTAN [Suspect]
     Active Substance: CANDESARTAN
     Route: 065
  365. AZD-1222 [Suspect]
     Active Substance: AZD-1222
     Indication: COVID-19 immunisation
     Route: 065
  366. AZD-1222 [Suspect]
     Active Substance: AZD-1222
     Route: 065
  367. CHOLECALCIFEROL [Suspect]
     Active Substance: CHOLECALCIFEROL
     Indication: Product used for unknown indication
     Route: 065
  368. CITALOPRAM HYDROBROMIDE [Suspect]
     Active Substance: CITALOPRAM HYDROBROMIDE
     Indication: Ill-defined disorder
     Route: 065
  369. COMIRNATY (TOZINAMERAN) [Suspect]
     Active Substance: TOZINAMERAN
     Indication: Product used for unknown indication
     Route: 065
  370. CORTIFOAM [Suspect]
     Active Substance: HYDROCORTISONE ACETATE
     Indication: Colitis ulcerative
     Dosage: 2 DOSAGE TAKEN
     Route: 065
  371. CORTIFOAM [Suspect]
     Active Substance: HYDROCORTISONE ACETATE
     Dosage: 1 EVERY 1 DAYS
     Route: 065
  372. CORTIFOAM [Suspect]
     Active Substance: HYDROCORTISONE ACETATE
     Dosage: 1 EVERY 8 WEEKS
     Route: 065
  373. CORTIFOAM [Suspect]
     Active Substance: HYDROCORTISONE ACETATE
     Dosage: 1 EVERY 1 DAYS
     Route: 065
  374. CORTIFOAM [Suspect]
     Active Substance: HYDROCORTISONE ACETATE
     Dosage: 1 EVERY 8 WEEKS, AEROSOL, FOAM
     Route: 065
  375. CORTIFOAM [Suspect]
     Active Substance: HYDROCORTISONE ACETATE
     Dosage: 1 EVERY 8 WEEKS
     Route: 065
  376. CORTIFOAM [Suspect]
     Active Substance: HYDROCORTISONE ACETATE
     Route: 048
  377. CORTIFOAM [Suspect]
     Active Substance: HYDROCORTISONE ACETATE
     Route: 065
  378. CORTIFOAM [Suspect]
     Active Substance: HYDROCORTISONE ACETATE
     Route: 048
  379. CORTIFOAM [Suspect]
     Active Substance: HYDROCORTISONE ACETATE
     Route: 065
  380. CORTIFOAM [Suspect]
     Active Substance: HYDROCORTISONE ACETATE
     Route: 048
  381. CORTIFOAM [Suspect]
     Active Substance: HYDROCORTISONE ACETATE
     Dosage: AEROSOL, FOAM
     Route: 048
  382. DAPAGLIFLOZIN [Suspect]
     Active Substance: DAPAGLIFLOZIN
     Indication: Cardiac failure chronic
     Route: 065
  383. DAPAGLIFLOZIN [Suspect]
     Active Substance: DAPAGLIFLOZIN
     Indication: Ill-defined disorder
     Route: 048
  384. DAPAGLIFLOZIN [Suspect]
     Active Substance: DAPAGLIFLOZIN
     Route: 065
  385. ENTYVIO [Suspect]
     Active Substance: VEDOLIZUMAB
     Indication: Deep vein thrombosis
     Route: 048
  386. ENTYVIO [Suspect]
     Active Substance: VEDOLIZUMAB
     Indication: Colitis ulcerative
     Route: 048
  387. ENTYVIO [Suspect]
     Active Substance: VEDOLIZUMAB
     Route: 065
  388. ENTYVIO [Suspect]
     Active Substance: VEDOLIZUMAB
     Dosage: POWDER FOR SOLUTION INTRAVENOUS, 3 DOSAGE TAKEN
     Route: 042
  389. ENTYVIO [Suspect]
     Active Substance: VEDOLIZUMAB
     Route: 042
  390. ESCITALOPRAM [Suspect]
     Active Substance: ESCITALOPRAM OXALATE
     Indication: Product used for unknown indication
     Route: 065
  391. ESCITALOPRAM [Suspect]
     Active Substance: ESCITALOPRAM OXALATE
     Route: 065
  392. ESOMEPRAZOLE MAGNESIUM [Suspect]
     Active Substance: ESOMEPRAZOLE MAGNESIUM
     Indication: Gastritis
     Route: 065
  393. FELODIPINE [Suspect]
     Active Substance: FELODIPINE
     Indication: Hypertension
     Route: 048
  394. FELODIPINE [Suspect]
     Active Substance: FELODIPINE
     Dosage: 1 EVERY .5 DAYS
     Route: 048
  395. FELODIPINE [Suspect]
     Active Substance: FELODIPINE
     Route: 048
  396. FUROSEMIDE [Suspect]
     Active Substance: FUROSEMIDE
     Indication: Product used for unknown indication
     Route: 065
  397. FUROSEMIDE [Suspect]
     Active Substance: FUROSEMIDE
     Route: 065
  398. GABAPENTIN [Suspect]
     Active Substance: GABAPENTIN
     Indication: Product used for unknown indication
     Route: 065
  399. GABAPENTIN [Suspect]
     Active Substance: GABAPENTIN
     Route: 065
  400. HUMIRA [Suspect]
     Active Substance: ADALIMUMAB
     Indication: Crohn^s disease
     Route: 065
  401. HUMIRA [Suspect]
     Active Substance: ADALIMUMAB
     Route: 065
  402. HUMIRA [Suspect]
     Active Substance: ADALIMUMAB
     Route: 065
  403. HUMIRA [Suspect]
     Active Substance: ADALIMUMAB
     Route: 065
  404. INFLIXIMAB [Suspect]
     Active Substance: INFLIXIMAB
     Indication: Crohn^s disease
     Route: 065
  405. INFLIXIMAB [Suspect]
     Active Substance: INFLIXIMAB
     Indication: Colitis ulcerative
     Route: 065
  406. INFLIXIMAB [Suspect]
     Active Substance: INFLIXIMAB
     Route: 065
  407. INFLIXIMAB [Suspect]
     Active Substance: INFLIXIMAB
     Route: 065
  408. INFLIXIMAB [Suspect]
     Active Substance: INFLIXIMAB
     Route: 065
  409. INFLIXIMAB [Suspect]
     Active Substance: INFLIXIMAB
     Route: 042
  410. INFLIXIMAB [Suspect]
     Active Substance: INFLIXIMAB
     Route: 065
  411. LEVOTHYROXINE SODIUM [Suspect]
     Active Substance: LEVOTHYROXINE SODIUM
     Indication: Product used for unknown indication
     Route: 065
  412. LISDEXAMFETAMINE DIMESYLATE [Suspect]
     Active Substance: LISDEXAMFETAMINE DIMESYLATE
     Indication: Product used for unknown indication
     Route: 065
  413. LISDEXAMFETAMINE DIMESYLATE [Suspect]
     Active Substance: LISDEXAMFETAMINE DIMESYLATE
     Route: 065
  414. LISDEXAMFETAMINE DIMESYLATE [Suspect]
     Active Substance: LISDEXAMFETAMINE DIMESYLATE
     Route: 065
  415. MEBEVERINE HYDROCHLORIDE [Suspect]
     Active Substance: MEBEVERINE HYDROCHLORIDE
     Indication: Product used for unknown indication
     Route: 065
  416. MEBEVERINE HYDROCHLORIDE [Suspect]
     Active Substance: MEBEVERINE HYDROCHLORIDE
     Route: 065
  417. MEBEVERINE HYDROCHLORIDE [Suspect]
     Active Substance: MEBEVERINE HYDROCHLORIDE
     Route: 065
  418. MESALAMINE [Suspect]
     Active Substance: MESALAMINE
     Indication: Colitis ulcerative
     Route: 048
  419. MESALAMINE [Suspect]
     Active Substance: MESALAMINE
     Route: 048
  420. MESALAMINE [Suspect]
     Active Substance: MESALAMINE
     Route: 048
  421. MESALAMINE [Suspect]
     Active Substance: MESALAMINE
     Route: 048
  422. MESALAMINE [Suspect]
     Active Substance: MESALAMINE
     Route: 065
  423. MESALAMINE [Suspect]
     Active Substance: MESALAMINE
     Route: 065
  424. MESALAMINE [Suspect]
     Active Substance: MESALAMINE
     Route: 065
  425. MESALAMINE [Suspect]
     Active Substance: MESALAMINE
     Dosage: 2 DOSAGE TAKEN
     Route: 065
  426. MESALAMINE [Suspect]
     Active Substance: MESALAMINE
     Route: 065
  427. MESALAMINE [Suspect]
     Active Substance: MESALAMINE
     Route: 065
  428. MESALAMINE [Suspect]
     Active Substance: MESALAMINE
     Route: 065
  429. MESALAMINE [Suspect]
     Active Substance: MESALAMINE
     Route: 065
  430. MESALAMINE [Suspect]
     Active Substance: MESALAMINE
     Dosage: 2 DOSAGE TAKEN
     Route: 065
  431. MESALAMINE [Suspect]
     Active Substance: MESALAMINE
     Route: 065
  432. MESALAMINE [Suspect]
     Active Substance: MESALAMINE
     Route: 065
  433. MESALAMINE [Suspect]
     Active Substance: MESALAMINE
     Route: 065
  434. MESALAMINE [Suspect]
     Active Substance: MESALAMINE
     Route: 065
  435. OMEPRAZOLE [Suspect]
     Active Substance: OMEPRAZOLE
     Indication: Product used for unknown indication
     Route: 065
  436. OMEPRAZOLE [Suspect]
     Active Substance: OMEPRAZOLE
     Route: 065
  437. OXYCODONE [Suspect]
     Active Substance: OXYCODONE
     Indication: Product used for unknown indication
     Route: 065
  438. PARA-AMINOSALICYLIC ACID [Suspect]
     Active Substance: AMINOSALICYLIC ACID
     Indication: Deep vein thrombosis
     Route: 065
  439. PARA-AMINOSALICYLIC ACID [Suspect]
     Active Substance: AMINOSALICYLIC ACID
     Indication: Colitis ulcerative
  440. PREDNISONE [Suspect]
     Active Substance: PREDNISONE
     Indication: Colitis ulcerative
     Dosage: 2 DOSAGE TAKEN
     Route: 065
  441. PREDNISONE [Suspect]
     Active Substance: PREDNISONE
     Route: 065
  442. PREDNISONE [Suspect]
     Active Substance: PREDNISONE
     Route: 065
  443. PREDNISONE [Suspect]
     Active Substance: PREDNISONE
     Route: 065
  444. REMICADE [Suspect]
     Active Substance: INFLIXIMAB
     Indication: Crohn^s disease
     Route: 065
  445. REMICADE [Suspect]
     Active Substance: INFLIXIMAB
     Indication: Colitis ulcerative
     Route: 065
  446. REMICADE [Suspect]
     Active Substance: INFLIXIMAB
     Route: 065
  447. REMICADE [Suspect]
     Active Substance: INFLIXIMAB
     Route: 065
  448. MESALAMINE [Suspect]
     Active Substance: MESALAMINE
     Indication: Product used for unknown indication
     Route: 048
  449. TOZINAMERAN [Suspect]
     Active Substance: TOZINAMERAN
     Indication: Product used for unknown indication
     Route: 065
  450. VYVANSE [Suspect]
     Active Substance: LISDEXAMFETAMINE DIMESYLATE
     Indication: Attention deficit hyperactivity disorder
     Route: 065
  451. ACETAMINOPHEN [Concomitant]
     Active Substance: ACETAMINOPHEN
     Indication: Product used for unknown indication
  452. ALGINIC ACID [Concomitant]
     Active Substance: ALGINIC ACID
     Indication: Product used for unknown indication
  453. ALUMINUM HYDROXIDE\SODIUM ALGINATE [Concomitant]
     Active Substance: ALUMINUM HYDROXIDE\SODIUM ALGINATE
     Indication: Product used for unknown indication
  454. AMLODIPINE [Concomitant]
     Active Substance: AMLODIPINE BESYLATE
     Indication: Product used for unknown indication
  455. AMLODIPINE [Concomitant]
     Active Substance: AMLODIPINE BESYLATE
  456. AMLODIPINE [Concomitant]
     Active Substance: AMLODIPINE BESYLATE
  457. AMLODIPINE [Concomitant]
     Active Substance: AMLODIPINE BESYLATE
     Route: 065
  458. AMLODIPINE [Concomitant]
     Active Substance: AMLODIPINE BESYLATE
     Route: 065
  459. AMLODIPINE [Concomitant]
     Active Substance: AMLODIPINE BESYLATE
  460. ATORVASTATIN CALCIUM [Concomitant]
     Active Substance: ATORVASTATIN CALCIUM
     Indication: Product used for unknown indication
  461. ATORVASTATIN CALCIUM [Concomitant]
     Active Substance: ATORVASTATIN CALCIUM
     Route: 065
  462. BETNOVATE [Concomitant]
     Active Substance: BETAMETHASONE
     Indication: Product used for unknown indication
  463. BISOPROLOL [Concomitant]
     Active Substance: BISOPROLOL
     Indication: Product used for unknown indication
  464. CALCIUM CARBONATE [Concomitant]
     Active Substance: CALCIUM CARBONATE
     Indication: Product used for unknown indication
  465. CALCIUM CARBONATE\CHOLECALCIFEROL [Concomitant]
     Active Substance: CALCIUM CARBONATE\CHOLECALCIFEROL
     Indication: Product used for unknown indication
  466. CALCIUM CARBONATE\CHOLECALCIFEROL [Concomitant]
     Active Substance: CALCIUM CARBONATE\CHOLECALCIFEROL
  467. CITALOPRAM HYDROBROMIDE [Concomitant]
     Active Substance: CITALOPRAM HYDROBROMIDE
     Indication: Product used for unknown indication
  468. CLOBETASONE BUTYRATE [Concomitant]
     Active Substance: CLOBETASONE BUTYRATE
     Indication: Ill-defined disorder
  469. DORZOLAMIDE [Concomitant]
     Active Substance: DORZOLAMIDE
     Indication: Product used for unknown indication
  470. EMPAGLIFLOZIN [Concomitant]
     Active Substance: EMPAGLIFLOZIN
     Indication: Ill-defined disorder

REACTIONS (53)
  - Weight decreased [Not Recovered/Not Resolved]
  - Impaired quality of life [Not Recovered/Not Resolved]
  - Deep vein thrombosis [Not Recovered/Not Resolved]
  - Colitis ulcerative [Not Recovered/Not Resolved]
  - Frequent bowel movements [Not Recovered/Not Resolved]
  - Bronchiectasis [Not Recovered/Not Resolved]
  - Loss of personal independence in daily activities [Not Recovered/Not Resolved]
  - Condition aggravated [Not Recovered/Not Resolved]
  - Haematochezia [Not Recovered/Not Resolved]
  - Impaired work ability [Not Recovered/Not Resolved]
  - Rectal haemorrhage [Not Recovered/Not Resolved]
  - Steroid dependence [Not Recovered/Not Resolved]
  - Stress [Not Recovered/Not Resolved]
  - Abdominal discomfort [Not Recovered/Not Resolved]
  - Arthritis [Not Recovered/Not Resolved]
  - Burns second degree [Not Recovered/Not Resolved]
  - COVID-19 [Recovered/Resolved]
  - Cardiac murmur [Not Recovered/Not Resolved]
  - Catarrh [Not Recovered/Not Resolved]
  - Cerebrovascular accident [Not Recovered/Not Resolved]
  - Confusional state [Not Recovered/Not Resolved]
  - Depression [Recovered/Resolved]
  - Dysgeusia [Not Recovered/Not Resolved]
  - Eczema [Recovered/Resolved]
  - Fatigue [Recovered/Resolved]
  - Gingival pain [Not Recovered/Not Resolved]
  - Headache [Recovered/Resolved]
  - Hypopnoea [Not Recovered/Not Resolved]
  - Migraine [Not Recovered/Not Resolved]
  - Nightmare [Recovered/Resolved]
  - Pain [Recovered/Resolved]
  - Pain in extremity [Not Recovered/Not Resolved]
  - Palpitations [Not Recovered/Not Resolved]
  - Parosmia [Not Recovered/Not Resolved]
  - Pulmonary embolism [Not Recovered/Not Resolved]
  - Pyrexia [Not Recovered/Not Resolved]
  - Rash [Not Recovered/Not Resolved]
  - Rhinitis [Not Recovered/Not Resolved]
  - Somnolence [Not Recovered/Not Resolved]
  - Swollen tongue [Recovered/Resolved]
  - Systemic lupus erythematosus [Not Recovered/Not Resolved]
  - Tinnitus [Not Recovered/Not Resolved]
  - Tubulointerstitial nephritis [Not Recovered/Not Resolved]
  - Vertigo [Not Recovered/Not Resolved]
  - Adverse drug reaction [Not Recovered/Not Resolved]
  - Alcohol poisoning [Not Recovered/Not Resolved]
  - Drug ineffective [Not Recovered/Not Resolved]
  - Accidental overdose [Not Recovered/Not Resolved]
  - Product use in unapproved indication [Not Recovered/Not Resolved]
  - Medication error [Not Recovered/Not Resolved]
  - Intentional product use issue [Not Recovered/Not Resolved]
  - Inappropriate schedule of product administration [Not Recovered/Not Resolved]
  - Off label use [Not Recovered/Not Resolved]

NARRATIVE: CASE EVENT DATE: 20080101
